FAERS Safety Report 4278878-4 (Version None)
Quarter: 2004Q1

REPORT INFORMATION
  Report Type: 
  Country: None (occurrence: None)
  Receive Date: 20040122
  Receipt Date: 20040107
  Transmission Date: 20041129
  Serious: Yes (Other)
  Sender: FDA-Public Use
  Company Number: S03-USA-04291-01

PATIENT
  Age: 26 Year
  Sex: Female

DRUGS (8)
  1. LEXAPRO [Suspect]
     Indication: DEPRESSION
     Dosage: 10 MG QD PO
     Route: 048
     Dates: start: 20030702, end: 20030101
  2. LEXAPRO [Suspect]
     Indication: DEPRESSION
     Dates: start: 20300101, end: 20030827
  3. LEXAPRO [Suspect]
     Indication: DEPRESSION
     Dosage: 10 MG QD PO
     Route: 048
     Dates: start: 20030929, end: 20030101
  4. VALIUM [Concomitant]
  5. KENALOG [Concomitant]
  6. NEURONTIN [Concomitant]
  7. INSULIN (NOS) [Concomitant]
  8. TRIPHASIL-21 [Concomitant]

REACTIONS (5)
  - DIABETIC RETINAL OEDEMA [None]
  - HYPERHIDROSIS [None]
  - OPEN ANGLE GLAUCOMA [None]
  - POST PROCEDURAL COMPLICATION [None]
  - RETINAL HAEMORRHAGE [None]
